FAERS Safety Report 23970757 (Version 1)
Quarter: 2024Q2

REPORT INFORMATION
  Report Type: Report from Study
  Country: US (occurrence: None)
  Receive Date: 20240613
  Receipt Date: 20240613
  Transmission Date: 20240716
  Serious: Yes (Hospitalization, Other)
  Sender: FDA-Public Use
  Company Number: 2024A133573

PATIENT
  Age: 844 Month
  Sex: Female
  Weight: 65.8 kg

DRUGS (12)
  1. BRILINTA [Suspect]
     Active Substance: TICAGRELOR
     Indication: Myocardial infarction
     Route: 048
     Dates: start: 202302
  2. ROSUVASTATIN [Suspect]
     Active Substance: ROSUVASTATIN
     Dosage: 1 TAB AT NIGHT
     Route: 048
     Dates: start: 20240521
  3. ASPIRIN [Concomitant]
     Active Substance: ASPIRIN
     Dosage: MORNING
     Dates: start: 20240522
  4. BASAGLAR KWIKPEN [Concomitant]
     Active Substance: INSULIN GLARGINE
     Dosage: 16 UNITS AT NIGHT
  5. CALCIUM CARBONATE [Concomitant]
     Active Substance: CALCIUM CARBONATE
     Dosage: AT MORNING
     Route: 048
  6. FOLIC ACID [Concomitant]
     Active Substance: FOLIC ACID
     Dosage: AT MORNING
     Route: 048
  7. LEFLUNOMIDE [Concomitant]
     Active Substance: LEFLUNOMIDE
     Dosage: AT MORNING
     Route: 048
  8. LEVOTHYROXINE [Concomitant]
     Active Substance: LEVOTHYROXINE\LEVOTHYROXINE SODIUM
     Dosage: AT MORNING
     Route: 048
     Dates: start: 20240522
  9. LEXAPRO [Concomitant]
     Active Substance: ESCITALOPRAM OXALATE
     Dosage: AT MORNING
     Route: 048
     Dates: start: 20240522
  10. LISINOPRIL [Concomitant]
     Active Substance: LISINOPRIL
     Dosage: AT MORNING
     Route: 048
     Dates: start: 20240522
  11. METOPROLOL SUCCINATE [Concomitant]
     Active Substance: METOPROLOL SUCCINATE
     Route: 048
     Dates: start: 20240522
  12. PROHANCE [Concomitant]
     Active Substance: GADOTERIDOL
     Dosage: AT MORNING

REACTIONS (1)
  - Cerebrovascular accident [Unknown]

NARRATIVE: CASE EVENT DATE: 20231001
